FAERS Safety Report 21797967 (Version 2)
Quarter: 2023Q1

REPORT INFORMATION
  Report Type: Spontaneous
  Country: US (occurrence: US)
  Receive Date: 20221230
  Receipt Date: 20230110
  Transmission Date: 20230418
  Serious: Yes (Disabling)
  Sender: FDA-Public Use
  Company Number: US-CIPLA LTD.-2022US07591

PATIENT
  Sex: Female

DRUGS (10)
  1. SAJAZIR [Suspect]
     Active Substance: ICATIBANT ACETATE
     Indication: Product used for unknown indication
     Dosage: 30 MILLIGRAM, PRN
     Route: 058
     Dates: start: 20220907
  2. SAJAZIR [Suspect]
     Active Substance: ICATIBANT ACETATE
     Dosage: 60 MILLIGRAM, PRN (2 SYRINGES)
     Route: 058
     Dates: start: 20221018
  3. SAJAZIR [Suspect]
     Active Substance: ICATIBANT ACETATE
     Dosage: 60 MILLIGRAM, PRN (2 SYRINGES)
     Route: 058
     Dates: start: 20221216
  4. SAJAZIR [Suspect]
     Active Substance: ICATIBANT ACETATE
     Dosage: 60 MILLIGRAM, PRN (2 SYRINGES)
     Route: 058
     Dates: start: 20221219
  5. SAJAZIR [Suspect]
     Active Substance: ICATIBANT ACETATE
     Dosage: 60 MILLIGRAM, PRN (2 SYRINGES)
     Route: 058
     Dates: start: 20221220
  6. ADDERALL [Concomitant]
     Active Substance: AMPHETAMINE ASPARTATE\AMPHETAMINE SULFATE\DEXTROAMPHETAMINE SACCHARATE\DEXTROAMPHETAMINE SULFATE
     Indication: Product used for unknown indication
     Dosage: UNK
     Route: 065
  7. KLONOPIN [Concomitant]
     Active Substance: CLONAZEPAM
     Indication: Product used for unknown indication
     Dosage: UNK
     Route: 065
  8. NASACORT [Concomitant]
     Active Substance: TRIAMCINOLONE ACETONIDE
     Indication: Product used for unknown indication
     Dosage: UNK
     Route: 065
  9. REGLAN [Concomitant]
     Active Substance: METOCLOPRAMIDE HYDROCHLORIDE
     Indication: Product used for unknown indication
     Dosage: UNK
     Route: 065
  10. RUCONEST [Concomitant]
     Active Substance: HUMAN C1-ESTERASE INHIBITOR
     Indication: Product used for unknown indication
     Dosage: UNK
     Route: 065

REACTIONS (1)
  - Hereditary angioedema [Recovered/Resolved]

NARRATIVE: CASE EVENT DATE: 20220101
